FAERS Safety Report 13222210 (Version 3)
Quarter: 2019Q1

REPORT INFORMATION
  Report Type: Other
  Country: US (occurrence: US)
  Receive Date: 20170211
  Receipt Date: 20190125
  Transmission Date: 20190417
  Serious: No
  Sender: FDA-Public Use
  Company Number: US-ACORDA-ACO_132796_2017

PATIENT
  Sex: Female

DRUGS (2)
  1. AMPYRA [Suspect]
     Active Substance: DALFAMPRIDINE
     Indication: MULTIPLE SCLEROSIS
  2. AMPYRA [Suspect]
     Active Substance: DALFAMPRIDINE
     Indication: GAIT DISTURBANCE
     Dosage: 10 MG, BID
     Route: 048
     Dates: start: 20161014

REACTIONS (3)
  - Musculoskeletal stiffness [Unknown]
  - Drug effect incomplete [Recovered/Resolved]
  - Drug ineffective [Unknown]
